FAERS Safety Report 16740637 (Version 1)
Quarter: 2019Q4

REPORT INFORMATION
  Report Type: Spontaneous
  Country: US (occurrence: US)
  Receive Date: 20190824
  Receipt Date: 20190824
  Transmission Date: 20200122
  Serious: Yes (Hospitalization)
  Sender: FDA-Public Use
  Company Number: None

PATIENT
  Age: 21 Year
  Sex: Male
  Weight: 74.25 kg

DRUGS (4)
  1. CIPROFLOXACIN. [Suspect]
     Active Substance: CIPROFLOXACIN
     Indication: EPIDIDYMITIS
     Dosage: ?          QUANTITY:20 TABLET(S);?
     Route: 048
     Dates: start: 20190715, end: 20190725
  2. COQ10 [Concomitant]
     Active Substance: UBIDECARENONE
  3. PROBIOTICS [Concomitant]
     Active Substance: PROBIOTICS NOS
  4. MAGNESIUM GLYCINATE [Concomitant]
     Active Substance: MAGNESIUM GLYCINATE

REACTIONS (8)
  - Myalgia [None]
  - Migraine [None]
  - Insomnia [None]
  - Anxiety [None]
  - Muscle twitching [None]
  - Panic attack [None]
  - Aspartate aminotransferase increased [None]
  - Visual impairment [None]
